FAERS Safety Report 5074060-1 (Version None)
Quarter: 2006Q3

REPORT INFORMATION
  Report Type: 
  Country: None (occurrence: None)
  Receive Date: 20060808
  Receipt Date: 20051115
  Transmission Date: 20061208
  Serious: Yes (Death)
  Sender: FDA-Public Use
  Company Number: JP-SANOFI-SYNTHELABO-A01200508035

PATIENT
  Sex: Male
  Weight: 48 kg

DRUGS (5)
  1. CALCIUM LEVOFOLINATE [Suspect]
     Indication: PANCREATIC CARCINOMA
     Dosage: 140MG/BODY=94.6MG/M2
     Route: 041
     Dates: start: 20051014, end: 20051015
  2. OXALIPLATIN [Suspect]
     Indication: PANCREATIC CARCINOMA
     Route: 041
     Dates: start: 20051014, end: 20051014
  3. DECADRON [Concomitant]
     Indication: PROPHYLAXIS OF NAUSEA AND VOMITING
     Route: 041
     Dates: start: 20051014, end: 20051014
  4. ZOFRAN [Concomitant]
     Indication: PROPHYLAXIS OF NAUSEA AND VOMITING
     Dosage: 1DF
     Route: 042
     Dates: start: 20051014, end: 20051014
  5. FLUOROURACIL [Suspect]
     Indication: PANCREATIC CARCINOMA
     Dosage: 590MG/BODY=398.6MG/M2 IN BOLUS THEN 890MG/BODY=601.4MG/M2 AS CONTINOUS INFUSION
     Route: 041
     Dates: start: 20051014, end: 20051015

REACTIONS (5)
  - ASCITES [None]
  - CARDIO-RESPIRATORY ARREST [None]
  - INTERSTITIAL LUNG DISEASE [None]
  - LYMPHANGIOSIS CARCINOMATOSA [None]
  - PUPILLARY REFLEX IMPAIRED [None]
